FAERS Safety Report 18255793 (Version 1)
Quarter: 2020Q3

REPORT INFORMATION
  Report Type: Other
  Country: US (occurrence: US)
  Receive Date: 20200910
  Receipt Date: 20200910
  Transmission Date: 20201103
  Serious: No
  Sender: FDA-Public Use
  Company Number: US-LEADIANT BIOSCIENCES INC-2019STPI000463

PATIENT

DRUGS (10)
  1. SPIRONOLACTONE. [Concomitant]
     Active Substance: SPIRONOLACTONE
  2. BUMETANIDE. [Concomitant]
     Active Substance: BUMETANIDE
  3. TAMSULOSIN [Concomitant]
     Active Substance: TAMSULOSIN
  4. PREDNISONE. [Concomitant]
     Active Substance: PREDNISONE
  5. AMBIEN [Concomitant]
     Active Substance: ZOLPIDEM TARTRATE
  6. ASPIRIN [ACETYLSALICYLIC ACID] [Concomitant]
     Active Substance: ASPIRIN
  7. LOSARTAN AND HYDROCHLOROTHIAZIDE [Concomitant]
     Active Substance: HYDROCHLOROTHIAZIDE\LOSARTAN POTASSIUM
  8. MATULANE [Suspect]
     Active Substance: PROCARBAZINE HYDROCHLORIDE
     Indication: DIFFUSE LARGE B-CELL LYMPHOMA
     Dosage: 100 MILLIGRAM, 2 CAPS DAILY ON DAYS 1?10
     Route: 048
     Dates: start: 20190612
  9. TYLENOL [Concomitant]
     Active Substance: ACETAMINOPHEN
  10. CARVEDILOL. [Concomitant]
     Active Substance: CARVEDILOL

REACTIONS (4)
  - Constipation [Not Recovered/Not Resolved]
  - Hypoaesthesia [Not Recovered/Not Resolved]
  - Diarrhoea [Not Recovered/Not Resolved]
  - Dizziness [Not Recovered/Not Resolved]

NARRATIVE: CASE EVENT DATE: 20190920
